FAERS Safety Report 6169720-5 (Version None)
Quarter: 2009Q2

REPORT INFORMATION
  Report Type: 
  Country: None (occurrence: None)
  Receive Date: 20090424
  Receipt Date: 20090210
  Transmission Date: 20091009
  Serious: No
  Sender: FDA-Public Use
  Company Number: ALL1-2009-00353

PATIENT
  Age: 9 Year
  Sex: Male

DRUGS (3)
  1. VYVANSE [Suspect]
     Indication: ATTENTION DEFICIT/HYPERACTIVITY DISORDER
     Dosage: ONE-HALF OF A 20MG CAPSULE, 1X/DAY:QD, ORAL ; 20 MG, 1X/DAY:QD, ORAL
     Route: 048
     Dates: start: 20080901, end: 20080901
  2. VYVANSE [Suspect]
     Indication: ATTENTION DEFICIT/HYPERACTIVITY DISORDER
     Dosage: ONE-HALF OF A 20MG CAPSULE, 1X/DAY:QD, ORAL ; 20 MG, 1X/DAY:QD, ORAL
     Route: 048
     Dates: start: 20080901, end: 20090101
  3. VYVANSE [Suspect]
     Indication: ATTENTION DEFICIT/HYPERACTIVITY DISORDER
     Dosage: ONE-HALF OF A 20MG CAPSULE, 1X/DAY:QD, ORAL ; 20 MG, 1X/DAY:QD, ORAL
     Route: 048
     Dates: start: 20090203, end: 20090204

REACTIONS (9)
  - ANOREXIA [None]
  - DRUG PRESCRIBING ERROR [None]
  - DYSKINESIA [None]
  - INFLUENZA [None]
  - INSOMNIA [None]
  - NAUSEA [None]
  - ORAL PRURITUS [None]
  - TACHYCARDIA [None]
  - VOMITING [None]
